FAERS Safety Report 26167714 (Version 1)
Quarter: 2025Q4

REPORT INFORMATION
  Report Type: Spontaneous
  Country: EU (occurrence: EU)
  Receive Date: 20251217
  Receipt Date: 20251217
  Transmission Date: 20260118
  Serious: Yes (Other)
  Sender: ACCORD
  Company Number: None

PATIENT
  Age: 77 Year
  Sex: Female

DRUGS (5)
  1. PACLITAXEL [Suspect]
     Active Substance: PACLITAXEL
     Indication: Skin squamous cell carcinoma recurrent
     Dosage: COURSE 2
     Dates: start: 2025
  2. PREGABALIN [Concomitant]
     Active Substance: PREGABALIN
     Dosage: 300 MG/24 HOURS
  3. TORADOL [Concomitant]
     Active Substance: KETOROLAC TROMETHAMINE
  4. CARBOPLATIN [Concomitant]
     Active Substance: CARBOPLATIN
  5. METHADONE [Concomitant]
     Active Substance: METHADONE HYDROCHLORIDE

REACTIONS (4)
  - Pneumonitis [Unknown]
  - Alveolitis [Unknown]
  - Depressed level of consciousness [Recovering/Resolving]
  - Somnolence [Recovering/Resolving]

NARRATIVE: CASE EVENT DATE: 20250101
